FAERS Safety Report 23591108 (Version 2)
Quarter: 2024Q3

REPORT INFORMATION
  Report Type: Spontaneous
  Country: DE (occurrence: DE)
  Receive Date: 20240304
  Receipt Date: 20240725
  Transmission Date: 20241016
  Serious: Yes (Hospitalization, Other)
  Sender: SANDOZ
  Company Number: None

PATIENT
  Age: 70 Year
  Sex: Male

DRUGS (35)
  1. DOXEPIN [Suspect]
     Active Substance: DOXEPIN
     Dosage: 100 MG, QD
     Route: 065
  2. DOXEPIN [Suspect]
     Active Substance: DOXEPIN
     Dosage: 100 MG, QD
     Route: 065
  3. DOXEPIN [Suspect]
     Active Substance: DOXEPIN
     Dosage: 100 MG, QD
     Route: 065
  4. DOXEPIN [Suspect]
     Active Substance: DOXEPIN
     Dosage: 50 MG, QD
     Route: 065
  5. DOXEPIN [Suspect]
     Active Substance: DOXEPIN
     Indication: Product used for unknown indication
     Dosage: 50 MG, QD, (0-0-2)
     Route: 065
  6. DOXEPIN [Suspect]
     Active Substance: DOXEPIN
     Dosage: 50 MG, QD
     Route: 065
  7. DOXEPIN [Suspect]
     Active Substance: DOXEPIN
     Dosage: 50 MG, QD
     Route: 065
  8. DOXEPIN [Suspect]
     Active Substance: DOXEPIN
     Dosage: 50 MG 0-0-2
     Route: 065
  9. DOXEPIN [Suspect]
     Active Substance: DOXEPIN
     Dosage: 50 MG, 0-0-2
     Route: 065
  10. DALFAMPRIDINE [Suspect]
     Active Substance: DALFAMPRIDINE
     Dosage: 10 MG, 0.5 DAY (1-0-1)
     Route: 065
  11. DALFAMPRIDINE [Suspect]
     Active Substance: DALFAMPRIDINE
     Indication: Product used for unknown indication
     Dosage: 10 MG, BID (1-0-1)
     Route: 065
  12. DALFAMPRIDINE [Suspect]
     Active Substance: DALFAMPRIDINE
     Dosage: 10 MG, 1-0-1
     Route: 065
  13. DALFAMPRIDINE [Suspect]
     Active Substance: DALFAMPRIDINE
     Dosage: 10 MG, 1-0-1 (0.5 DAY)
     Route: 065
  14. DALFAMPRIDINE [Suspect]
     Active Substance: DALFAMPRIDINE
     Dosage: UNK, BID (1-0-1)
     Route: 065
  15. DALFAMPRIDINE [Suspect]
     Active Substance: DALFAMPRIDINE
     Dosage: 1-0-1 (0.5 DAY)
     Route: 065
  16. DALFAMPRIDINE [Suspect]
     Active Substance: DALFAMPRIDINE
     Dosage: UNK, 1-0-1
     Route: 065
  17. DALFAMPRIDINE [Suspect]
     Active Substance: DALFAMPRIDINE
     Dosage: UNK, 1-0-1 (0.5 DAY)
     Route: 065
  18. OCREVUS [Suspect]
     Active Substance: OCRELIZUMAB
     Indication: Primary progressive multiple sclerosis
     Dosage: 300 MG
     Route: 042
     Dates: start: 20180613
  19. OCREVUS [Suspect]
     Active Substance: OCRELIZUMAB
     Dosage: 600 MG
     Route: 042
     Dates: start: 20181126
  20. OCREVUS [Suspect]
     Active Substance: OCRELIZUMAB
     Dosage: 600 MG
     Route: 042
     Dates: start: 20211027
  21. OCREVUS [Suspect]
     Active Substance: OCRELIZUMAB
     Dosage: 600 MG
     Route: 042
     Dates: start: 202004
  22. OCREVUS [Suspect]
     Active Substance: OCRELIZUMAB
     Dosage: 600 MG
     Route: 042
     Dates: start: 202010
  23. OCREVUS [Suspect]
     Active Substance: OCRELIZUMAB
     Dosage: 600 MG
     Route: 042
  24. OCREVUS [Suspect]
     Active Substance: OCRELIZUMAB
     Dosage: 600 MG (2ND MAINTENANCE DOSE)
     Route: 042
     Dates: start: 20190513
  25. OCREVUS [Suspect]
     Active Substance: OCRELIZUMAB
     Dosage: 600 MG, (THEN 600 MG ONCE IN 261 DAYS)
     Route: 042
     Dates: start: 20200602
  26. AMANTADINE [Concomitant]
     Active Substance: AMANTADINE
     Indication: Product used for unknown indication
     Dosage: 100 MG (0.5 DAY)
     Route: 065
  27. LEVODOPA [Concomitant]
     Active Substance: LEVODOPA
     Indication: Product used for unknown indication
     Dosage: 1 DF, QD
     Route: 065
  28. LEVODOPA [Concomitant]
     Active Substance: LEVODOPA
     Dosage: FREQUENCY TEXT:1-0-0
     Route: 065
  29. LEVODOPA [Concomitant]
     Active Substance: LEVODOPA
     Dosage: QD
     Route: 065
  30. LEVODOPA [Concomitant]
     Active Substance: LEVODOPA
     Dosage: UNK, QD
     Route: 065
  31. NEUPRO [Concomitant]
     Active Substance: ROTIGOTINE
     Dosage: FREQUENCY TEXT:24H
     Route: 065
  32. NEUPRO [Concomitant]
     Active Substance: ROTIGOTINE
     Indication: Product used for unknown indication
     Dosage: UNK
     Route: 065
  33. TAMSULOSIN [Concomitant]
     Active Substance: TAMSULOSIN
     Indication: Product used for unknown indication
     Dosage: 0.4 MG, QD
     Route: 065
  34. TAMSULOSIN [Concomitant]
     Active Substance: TAMSULOSIN
     Dosage: 0.400MG QD
     Route: 065
  35. TAMSULOSIN [Concomitant]
     Active Substance: TAMSULOSIN
     Dosage: FREQUENCY TEXT:1-0-0
     Route: 065

REACTIONS (33)
  - Bladder cancer [Not Recovered/Not Resolved]
  - Muscular weakness [Not Recovered/Not Resolved]
  - Groin pain [Recovering/Resolving]
  - Swelling [Recovering/Resolving]
  - Inguinal hernia [Recovered/Resolved]
  - Pain in extremity [Recovered/Resolved]
  - Muscular weakness [Recovered/Resolved]
  - Gallbladder cancer [Recovered/Resolved]
  - Gait disturbance [Not Recovered/Not Resolved]
  - Fatigue [Not Recovered/Not Resolved]
  - Chest pain [Not Recovered/Not Resolved]
  - Muscle spasms [Recovered/Resolved]
  - Fall [Unknown]
  - Fall [Unknown]
  - Arthropod bite [Recovering/Resolving]
  - Defaecation urgency [Recovering/Resolving]
  - Fluid retention [Recovering/Resolving]
  - Wound [Recovered/Resolved]
  - Rhinorrhoea [Recovered/Resolved]
  - Nasal congestion [Recovered/Resolved]
  - Dry mouth [Recovered/Resolved]
  - Movement disorder [Recovered/Resolved]
  - Pain in extremity [Recovered/Resolved]
  - Headache [Recovered/Resolved]
  - Rib fracture [Recovered/Resolved]
  - Initial insomnia [Recovered/Resolved]
  - Wound [Recovered/Resolved]
  - Balance disorder [Not Recovered/Not Resolved]
  - Contusion [Recovered/Resolved]
  - Balance disorder [Recovered/Resolved]
  - Back pain [Recovered/Resolved]
  - Arthralgia [Recovered/Resolved]
  - Middle insomnia [Recovered/Resolved]

NARRATIVE: CASE EVENT DATE: 20180613
